FAERS Safety Report 9997622 (Version 1)
Quarter: 2014Q1

REPORT INFORMATION
  Report Type: Spontaneous
  Country: US (occurrence: None)
  Receive Date: 20140225
  Receipt Date: 20140225
  Transmission Date: 20141002
  Serious: Yes (Other)
  Sender: FDA-Public Use
  Company Number: 2013-342

PATIENT
  Age: 48 Year
  Sex: Female
  Weight: 85.3 kg

DRUGS (5)
  1. PRIALT [Suspect]
     Indication: RADICULITIS LUMBOSACRAL
     Route: 037
  2. PRIALT [Suspect]
     Indication: SPINAL OSTEOARTHRITIS
     Route: 037
  3. MORPHINE SULFATE [Concomitant]
  4. DILAUDID (HYDROMORPHONE HYDROCHLORIDE) [Concomitant]
  5. ROBAXIN (METHOCARBAMOL) [Concomitant]

REACTIONS (3)
  - Hallucination, auditory [None]
  - Drug ineffective [None]
  - Dysarthria [None]
